FAERS Safety Report 8988044 (Version 2)
Quarter: 2013Q2

REPORT INFORMATION
  Report Type: Spontaneous
  Country: FR (occurrence: FR)
  Receive Date: 20121227
  Receipt Date: 20130412
  Transmission Date: 20140414
  Serious: Yes (Hospitalization)
  Sender: FDA-Public Use
  Company Number: FR-NOVOPROD-367542

PATIENT
  Age: 62 Year
  Sex: Female
  Weight: 101 kg

DRUGS (6)
  1. VICTOZA [Suspect]
     Indication: TYPE 2 DIABETES MELLITUS
     Dosage: UNKNOWN
     Route: 058
     Dates: start: 20120903, end: 20121112
  2. LEVEMIR [Concomitant]
     Dosage: UNK
  3. DAONIL [Concomitant]
  4. GLUCOPHAGE [Concomitant]
  5. HYZAAR [Concomitant]
  6. COZAAR [Concomitant]

REACTIONS (2)
  - Pancreatitis acute [Recovered/Resolved]
  - Hepatitis [Recovered/Resolved]
